FAERS Safety Report 8774239 (Version 1)
Quarter: 2012Q4

REPORT INFORMATION
  Report Type: 
  Country: BR (occurrence: BR)
  Receive Date: 20120907
  Receipt Date: 20120907
  Transmission Date: 20130627
  Serious: Yes (Hospitalization, Other)
  Sender: FDA-Public Use
  Company Number: BR-PFIZER INC-2012216243

PATIENT
  Age: 59 Year
  Sex: Female

DRUGS (3)
  1. XALATAN [Suspect]
     Indication: GLAUCOMA
     Dosage: two drops, 1x/day
     Dates: start: 1997
  2. XALACOM [Suspect]
     Indication: GLAUCOMA
     Dosage: UNK
     Dates: start: 2006, end: 2010
  3. AZORGA [Concomitant]
     Indication: GLAUCOMA
     Dosage: UNK
     Dates: start: 2011

REACTIONS (4)
  - Glaucoma [Unknown]
  - Cerebrovascular accident [Unknown]
  - Intraocular pressure increased [Unknown]
  - Overdose [Unknown]
